FAERS Safety Report 16467807 (Version 2)
Quarter: 2019Q4

REPORT INFORMATION
  Report Type: Report from Study
  Country: JP (occurrence: JP)
  Receive Date: 20190624
  Receipt Date: 20191202
  Transmission Date: 20200122
  Serious: Yes (Other)
  Sender: FDA-Public Use
  Company Number: JP-GLAXOSMITHKLINE-JP2019JPN109724

PATIENT
  Age: 7 Decade
  Sex: Female
  Weight: 53 kg

DRUGS (24)
  1. PREDONINE [Concomitant]
     Active Substance: PREDNISOLONE
     Indication: EOSINOPHILIC GRANULOMATOSIS WITH POLYANGIITIS
     Dosage: 60 MG, 1D
     Dates: start: 20190111, end: 20190127
  2. PREDONINE [Concomitant]
     Active Substance: PREDNISOLONE
     Dosage: 50 MG, 1D
     Dates: start: 20190215, end: 20190221
  3. PREDONINE [Concomitant]
     Active Substance: PREDNISOLONE
     Dosage: 30 MG, 1D
     Dates: start: 20190308, end: 20190319
  4. METHYCOBAL [Concomitant]
     Active Substance: METHYLCOBALAMIN
     Indication: EOSINOPHILIC GRANULOMATOSIS WITH POLYANGIITIS
     Dosage: UNK
  5. AZILVA [Concomitant]
     Active Substance: AZILSARTAN KAMEDOXOMIL
     Dosage: UNK
  6. MEPOLIZUMAB [Suspect]
     Active Substance: MEPOLIZUMAB
     Dosage: 300 MG, QD
     Route: 058
     Dates: start: 20190410, end: 20190410
  7. PREDONINE [Concomitant]
     Active Substance: PREDNISOLONE
     Dosage: 40 MG, 1D
     Dates: start: 20190222, end: 20190307
  8. GOSHAJINKIGAN [Concomitant]
     Active Substance: HERBALS
     Indication: EOSINOPHILIC GRANULOMATOSIS WITH POLYANGIITIS
     Dosage: UNK
  9. MEPOLIZUMAB [Suspect]
     Active Substance: MEPOLIZUMAB
     Indication: EOSINOPHILIC GRANULOMATOSIS WITH POLYANGIITIS
     Dosage: 300 MG, QD
     Route: 058
     Dates: start: 20190212, end: 20190212
  10. SAMTIREL [Suspect]
     Active Substance: ATOVAQUONE
     Indication: PROPHYLAXIS
     Dosage: 10 ML, QD
     Route: 048
     Dates: start: 20190131, end: 20190221
  11. PREDONINE [Concomitant]
     Active Substance: PREDNISOLONE
     Dosage: 60 MG, 1D
     Dates: start: 20190131, end: 20190214
  12. ENDOXAN [Concomitant]
     Active Substance: CYCLOPHOSPHAMIDE
     Dosage: 750 MG, 1D
     Dates: start: 20190301, end: 20190301
  13. PREDONINE [Concomitant]
     Active Substance: PREDNISOLONE
     Dosage: 20 MG, 1D
     Dates: start: 20190320, end: 20190409
  14. ENDOXAN [Concomitant]
     Active Substance: CYCLOPHOSPHAMIDE
     Indication: EOSINOPHILIC GRANULOMATOSIS WITH POLYANGIITIS
     Dosage: 750 MG, 1D
     Dates: start: 20190118, end: 20190118
  15. MEPOLIZUMAB [Suspect]
     Active Substance: MEPOLIZUMAB
     Dosage: 300 MG, QD
     Route: 058
     Dates: start: 20190312, end: 20190312
  16. SOL-MELCORT [Concomitant]
     Active Substance: METHYLPREDNISOLONE SODIUM SUCCINATE
     Indication: EOSINOPHILIC GRANULOMATOSIS WITH POLYANGIITIS
     Dosage: 1000 MG, 1D
     Dates: start: 20190108, end: 20190110
  17. DAIPHEN [Concomitant]
     Active Substance: SULFAMETHOXAZOLE\TRIMETHOPRIM
     Indication: PROPHYLAXIS
     Dosage: UNK
  18. PREDONINE [Concomitant]
     Active Substance: PREDNISOLONE
     Dosage: 15 MG, 1D
     Dates: start: 20190410, end: 20190514
  19. PREDONINE [Concomitant]
     Active Substance: PREDNISOLONE
     Dosage: 12.5 MG, 1D
     Dates: start: 20190515
  20. SOL-MELCORT [Concomitant]
     Active Substance: METHYLPREDNISOLONE SODIUM SUCCINATE
     Dosage: 500 MG, 1D
     Dates: start: 20190128, end: 20190130
  21. ENDOXAN [Concomitant]
     Active Substance: CYCLOPHOSPHAMIDE
     Dosage: 750 MG, 1D
     Dates: start: 20190208, end: 20190208
  22. NEXIUM [Concomitant]
     Active Substance: ESOMEPRAZOLE MAGNESIUM
     Indication: PROPHYLAXIS
     Dosage: UNK
  23. BONALON [Concomitant]
     Active Substance: ALENDRONATE SODIUM
     Indication: PROPHYLAXIS
     Dosage: UNK
  24. MEPOLIZUMAB [Suspect]
     Active Substance: MEPOLIZUMAB
     Dosage: 300 MG, QD
     Route: 058
     Dates: start: 20190515, end: 20190515

REACTIONS (2)
  - Enterocolitis [Recovered/Resolved]
  - Diarrhoea [Recovered/Resolved]

NARRATIVE: CASE EVENT DATE: 20190219
